FAERS Safety Report 24189300 (Version 3)
Quarter: 2024Q3

REPORT INFORMATION
  Report Type: Report from Study
  Country: BG (occurrence: BG)
  Receive Date: 20240808
  Receipt Date: 20240924
  Transmission Date: 20241017
  Serious: Yes (Hospitalization, Other)
  Sender: AKCEA THERAPEUTICS
  Company Number: BG-AKCEA THERAPEUTICS, INC.-2024IS006175

PATIENT

DRUGS (1)
  1. TEGSEDI [Suspect]
     Active Substance: INOTERSEN SODIUM
     Indication: Hereditary neuropathic amyloidosis
     Dosage: 284 MILLIGRAM, QW
     Route: 058
     Dates: start: 20240412, end: 20240801

REACTIONS (22)
  - Arrhythmia [Not Recovered/Not Resolved]
  - Palpitations [Unknown]
  - Blood creatinine increased [Unknown]
  - Platelet count decreased [Unknown]
  - Conduction disorder [Unknown]
  - Atrial flutter [Unknown]
  - Atrial fibrillation [Unknown]
  - Fatigue [Unknown]
  - Dyspnoea [Unknown]
  - Oedema peripheral [Unknown]
  - Cardiac failure [Unknown]
  - Prothrombin time prolonged [Unknown]
  - International normalised ratio decreased [Unknown]
  - General physical health deterioration [Recovering/Resolving]
  - Echocardiogram abnormal [Unknown]
  - Mitral valve incompetence [Unknown]
  - Catheterisation cardiac [Unknown]
  - Hypopnoea [Unknown]
  - Respiratory disorder [Unknown]
  - Left ventricular dysfunction [Unknown]
  - Generalised oedema [Unknown]
  - Hypertension [Unknown]

NARRATIVE: CASE EVENT DATE: 20240101
